FAERS Safety Report 23098763 (Version 1)
Quarter: 2023Q4

REPORT INFORMATION
  Report Type: Spontaneous
  Country: FR (occurrence: None)
  Receive Date: 20231024
  Receipt Date: 20231024
  Transmission Date: 20240110
  Serious: Yes (Life-Threatening, Hospitalization)
  Sender: FDA-Public Use
  Company Number: 2023A239314

PATIENT
  Sex: Male
  Weight: 78 kg

DRUGS (11)
  1. TICAGRELOR [Suspect]
     Active Substance: TICAGRELOR
     Indication: Infarction
     Dosage: 90.0MG UNKNOWN
     Route: 048
     Dates: start: 20230914, end: 20230926
  2. CLOPIDOGREL [Suspect]
     Active Substance: CLOPIDOGREL BISULFATE
     Indication: Infarction
     Dosage: 75.0MG UNKNOWN
     Route: 048
     Dates: start: 20230825, end: 20230914
  3. PRASUGREL [Suspect]
     Active Substance: PRASUGREL
     Indication: Infarction
     Dosage: 10.0MG UNKNOWN
     Route: 048
     Dates: start: 20230702, end: 20230825
  4. BISOPROLOL [Concomitant]
     Active Substance: BISOPROLOL\BISOPROLOL FUMARATE
     Dosage: 1.0DF UNKNOWN
     Route: 048
     Dates: start: 20230702
  5. ENTRESTO [Concomitant]
     Active Substance: SACUBITRIL\VALSARTAN
     Dosage: 2.0DF UNKNOWN
     Route: 048
     Dates: start: 20230702, end: 202308
  6. LIPTRUZET [Concomitant]
     Active Substance: ATORVASTATIN CALCIUM\EZETIMIBE
     Dosage: 1.0DF UNKNOWN
     Route: 048
     Dates: start: 20230702, end: 202308
  7. RAMIPRIL [Concomitant]
     Active Substance: RAMIPRIL
     Dosage: 1.0DF UNKNOWN
     Route: 048
     Dates: start: 202308, end: 202309
  8. KARDEGIC [Concomitant]
     Active Substance: ASPIRIN DL-LYSINE
     Dosage: 75.0MG UNKNOWN
     Route: 048
     Dates: start: 20230702, end: 20230921
  9. DAPAGLIFLOZIN [Concomitant]
     Active Substance: DAPAGLIFLOZIN
     Dosage: 10.0MG UNKNOWN
     Route: 048
     Dates: start: 20230702, end: 202309
  10. PANTOPRAZOLE [Concomitant]
     Active Substance: PANTOPRAZOLE
     Dosage: 1.0DF UNKNOWN
     Route: 048
     Dates: start: 20230702, end: 202309
  11. SPIRONOLACTONE [Concomitant]
     Active Substance: SPIRONOLACTONE
     Dosage: 25.0MG UNKNOWN
     Route: 048
     Dates: start: 20230702

REACTIONS (1)
  - Thrombotic thrombocytopenic purpura [Recovering/Resolving]

NARRATIVE: CASE EVENT DATE: 20230801
